FAERS Safety Report 21832326 (Version 2)
Quarter: 2023Q1

REPORT INFORMATION
  Report Type: Spontaneous
  Country: US (occurrence: US)
  Receive Date: 20230106
  Receipt Date: 20230330
  Transmission Date: 20230418
  Serious: No
  Sender: FDA-Public Use
  Company Number: US-SA-SAC20230104000848

PATIENT
  Age: 50 Year
  Sex: Male

DRUGS (6)
  1. DUPIXENT [Suspect]
     Active Substance: DUPILUMAB
     Indication: Asthma
     Dosage: 300 MG, QOW
     Route: 058
     Dates: start: 20221108
  2. AZITHROMYCIN [Concomitant]
     Active Substance: AZITHROMYCIN
     Dosage: 250MG
  3. BUDESONIDE [Concomitant]
     Active Substance: BUDESONIDE
     Dosage: 20MG
  4. PREDNISONE [Concomitant]
     Active Substance: PREDNISONE
     Indication: Asthma
     Dosage: 20MG
  5. STERILE WATER [Concomitant]
     Active Substance: WATER
     Dosage: (10ML=1VL)
  6. XOLAIR [Concomitant]
     Active Substance: OMALIZUMAB

REACTIONS (5)
  - Impaired quality of life [Unknown]
  - Oropharyngeal pain [Unknown]
  - Asthma [Unknown]
  - Drug ineffective [Unknown]
  - Extra dose administered [Unknown]
